FAERS Safety Report 9723782 (Version 3)
Quarter: 2014Q1

REPORT INFORMATION
  Report Type: Spontaneous
  Country: US (occurrence: US)
  Receive Date: 20131202
  Receipt Date: 20140217
  Transmission Date: 20141002
  Serious: Yes (Hospitalization, Other)
  Sender: FDA-Public Use
  Company Number: US-PFIZER INC-2013338199

PATIENT
  Age: 64 Year
  Sex: Female

DRUGS (1)
  1. SUTENT [Suspect]
     Indication: METASTATIC RENAL CELL CARCINOMA
     Dosage: 50 MG, CYCLIC (QDX28 DAYS ON, 14 DAYS OFF)
     Route: 048
     Dates: start: 20130904, end: 20131108

REACTIONS (21)
  - Stomatitis [Unknown]
  - Swollen tongue [Unknown]
  - Tongue discolouration [Unknown]
  - Tongue disorder [Unknown]
  - Nausea [Unknown]
  - Yellow skin [Unknown]
  - Gallbladder disorder [Unknown]
  - Pancreatitis [Unknown]
  - Alopecia [Unknown]
  - Hair colour changes [Unknown]
  - Decreased appetite [Unknown]
  - Asthenia [Unknown]
  - Haematochezia [Recovered/Resolved]
  - Anaemia [Unknown]
  - Thrombocytopenia [Recovered/Resolved]
  - Diarrhoea [Recovered/Resolved]
  - Lower gastrointestinal haemorrhage [Recovered/Resolved]
  - Fatigue [Recovered/Resolved]
  - Haemorrhoids [Unknown]
  - Pancytopenia [Unknown]
  - Decubitus ulcer [Unknown]
